FAERS Safety Report 17288612 (Version 2)
Quarter: 2020Q1

REPORT INFORMATION
  Report Type: Spontaneous
  Country: US (occurrence: US)
  Receive Date: 20200120
  Receipt Date: 20200211
  Transmission Date: 20200409
  Serious: Yes (Other)
  Sender: FDA-Public Use
  Company Number: US-AMGEN-USASP2020007638

PATIENT
  Age: 20 Year
  Sex: Female

DRUGS (1)
  1. CORLANOR [Suspect]
     Active Substance: IVABRADINE HYDROCHLORIDE
     Indication: TACHYCARDIA
     Dosage: UNK, 10 MG IN THE MORNING AND 7 AND 1/2 MG IN THE EVENING
     Route: 065
     Dates: start: 2018

REACTIONS (3)
  - Gastrooesophageal reflux disease [Unknown]
  - Connective tissue disorder [Unknown]
  - Off label use [Unknown]
